FAERS Safety Report 20776755 (Version 2)
Quarter: 2022Q2

REPORT INFORMATION
  Report Type: Report from Study
  Country: JP (occurrence: JP)
  Receive Date: 20220502
  Receipt Date: 20220620
  Transmission Date: 20220720
  Serious: Yes (Hospitalization, Other)
  Sender: FDA-Public Use
  Company Number: JP-BRISTOL-MYERS SQUIBB COMPANY-2022-013771

PATIENT
  Age: 64 Year
  Sex: Male
  Weight: 68 kg

DRUGS (58)
  1. CISPLATIN [Suspect]
     Active Substance: CISPLATIN
     Indication: Non-small cell lung cancer
     Dosage: MOST RECENT DOSE WAS RECEIVED ON 28-JAN-2022
     Route: 042
     Dates: start: 20211126
  2. PEMETREXED DISODIUM [Suspect]
     Active Substance: PEMETREXED DISODIUM
     Indication: Non-small cell lung cancer
     Dosage: THE MOST RECENT DOSE-28-JAN-2022
     Route: 065
     Dates: start: 20211126
  3. VEEN D [Concomitant]
     Active Substance: CALCIUM CHLORIDE\DEXTROSE\POTASSIUM CHLORIDE\SODIUM ACETATE\SODIUM CHLORIDE
     Indication: Product used for unknown indication
     Dosage: 1 DF= 500 UNIT NOS
     Route: 042
     Dates: start: 20220308, end: 20220314
  4. ESZOPICLONE [Concomitant]
     Active Substance: ESZOPICLONE
     Indication: Product used for unknown indication
     Dosage: ONGOING
     Route: 048
     Dates: start: 20220318
  5. AMOXICILLIN [Concomitant]
     Active Substance: AMOXICILLIN
     Indication: Product used for unknown indication
     Route: 048
     Dates: start: 20220318, end: 20220326
  6. THIAMINE DISULFIDE PHOSPHATE, PYRIDOXINE HYDROCHLORIDE, CYANOCOBALAMIN [Concomitant]
     Indication: Product used for unknown indication
     Route: 042
     Dates: start: 20220327, end: 20220414
  7. LEVETIRACETAM [Concomitant]
     Active Substance: LEVETIRACETAM
     Indication: Prophylaxis
     Route: 042
     Dates: start: 20220327, end: 20220415
  8. LOPERAMIDE HYDROCHLORIDE [Concomitant]
     Active Substance: LOPERAMIDE HYDROCHLORIDE
     Indication: Colitis
     Dosage: ONGOING
     Route: 048
     Dates: start: 20220218
  9. LOPERAMIDE HYDROCHLORIDE [Concomitant]
     Active Substance: LOPERAMIDE HYDROCHLORIDE
  10. ALLOPURINOL [Concomitant]
     Active Substance: ALLOPURINOL
     Indication: Product used for unknown indication
     Dosage: ONGOING
     Route: 048
     Dates: start: 20210721
  11. ALLOPURINOL [Concomitant]
     Active Substance: ALLOPURINOL
  12. CHLORPROMAZINE HYDROCHLORIDE [Concomitant]
     Active Substance: CHLORPROMAZINE HYDROCHLORIDE
     Indication: Nausea
     Dosage: ONGOING
     Route: 048
     Dates: start: 20211129
  13. CHLORPROMAZINE HYDROCHLORIDE [Concomitant]
     Active Substance: CHLORPROMAZINE HYDROCHLORIDE
  14. METOCLOPRAMIDE HYDROCHLORIDE [Concomitant]
     Active Substance: METOCLOPRAMIDE HYDROCHLORIDE
     Indication: Hiccups
     Dosage: ONGOING
     Route: 048
     Dates: start: 20211203
  15. METOCLOPRAMIDE HYDROCHLORIDE [Concomitant]
     Active Substance: METOCLOPRAMIDE HYDROCHLORIDE
  16. ACETAMINOPHEN [Concomitant]
     Active Substance: ACETAMINOPHEN
     Indication: Prophylaxis
     Dosage: ONGOING
     Route: 048
     Dates: start: 20211203
  17. ACETAMINOPHEN [Concomitant]
     Active Substance: ACETAMINOPHEN
     Dosage: ONGOING
     Route: 048
     Dates: start: 20220318
  18. NAPROXEN [Concomitant]
     Active Substance: NAPROXEN
     Indication: Product used for unknown indication
     Dosage: ONGOING
     Route: 048
     Dates: start: 20211217
  19. NAPROXEN [Concomitant]
     Active Substance: NAPROXEN
  20. TRANEXAMIC ACID [Concomitant]
     Active Substance: TRANEXAMIC ACID
     Indication: Epistaxis
     Dosage: ONGOING
     Route: 048
     Dates: start: 20220107
  21. TRANEXAMIC ACID [Concomitant]
     Active Substance: TRANEXAMIC ACID
  22. POLAPREZINC [Concomitant]
     Active Substance: POLAPREZINC
     Indication: Gastritis
     Dosage: ONGOING
     Route: 048
     Dates: start: 20220107
  23. POLAPREZINC [Concomitant]
     Active Substance: POLAPREZINC
  24. AMLODIPINE BESYLATE [Concomitant]
     Active Substance: AMLODIPINE BESYLATE
     Indication: Hypertension
     Dosage: ONGOING
     Route: 048
     Dates: start: 20220107
  25. AMLODIPINE BESYLATE [Concomitant]
     Active Substance: AMLODIPINE BESYLATE
  26. DEXAMETHASONE SODIUM PHOSPHATE [Concomitant]
     Active Substance: DEXAMETHASONE SODIUM PHOSPHATE
     Indication: Prophylaxis
     Dosage: ONGOING
     Route: 042
     Dates: start: 20211126
  27. DEXAMETHASONE SODIUM PHOSPHATE [Concomitant]
     Active Substance: DEXAMETHASONE SODIUM PHOSPHATE
  28. PALONOSETRON HYDROCHLORIDE [Concomitant]
     Active Substance: PALONOSETRON HYDROCHLORIDE
     Indication: Prophylaxis
     Dosage: ONGOING
     Route: 042
     Dates: start: 20211126
  29. PALONOSETRON HYDROCHLORIDE [Concomitant]
     Active Substance: PALONOSETRON HYDROCHLORIDE
  30. MANNITOL [Concomitant]
     Active Substance: MANNITOL
     Indication: Prophylaxis
     Dosage: 1 DF= 300 UNITS NOT PROVIDED?ONGOING
     Route: 042
     Dates: start: 20211126
  31. MANNITOL [Concomitant]
     Active Substance: MANNITOL
  32. SOLDEM 3AG [Concomitant]
     Indication: Product used for unknown indication
     Dosage: 1 DF=500 UNIT NOT PROVIDED-ONGOING
     Route: 042
     Dates: start: 20220221
  33. SOLDEM 3AG [Concomitant]
  34. METRONIDAZOLE [Concomitant]
     Active Substance: METRONIDAZOLE
     Indication: Clostridium difficile infection
     Dosage: ONGOING
     Route: 048
     Dates: start: 20220305
  35. METRONIDAZOLE [Concomitant]
     Active Substance: METRONIDAZOLE
  36. PREDNISOLONE SODIUM SUCCINATE [Concomitant]
     Active Substance: PREDNISOLONE SODIUM SUCCINATE
     Indication: Colitis
     Dosage: ONGOING
     Route: 042
     Dates: start: 20220312, end: 20220314
  37. PREDNISOLONE SODIUM SUCCINATE [Concomitant]
     Active Substance: PREDNISOLONE SODIUM SUCCINATE
     Route: 048
     Dates: start: 20220315, end: 20220317
  38. PREDNISOLONE SODIUM SUCCINATE [Concomitant]
     Active Substance: PREDNISOLONE SODIUM SUCCINATE
     Route: 048
     Dates: start: 20220318, end: 20220320
  39. PREDNISOLONE SODIUM SUCCINATE [Concomitant]
     Active Substance: PREDNISOLONE SODIUM SUCCINATE
     Route: 048
     Dates: start: 20220321, end: 20220323
  40. PREDNISOLONE SODIUM SUCCINATE [Concomitant]
     Active Substance: PREDNISOLONE SODIUM SUCCINATE
     Route: 048
     Dates: start: 20220324, end: 20220326
  41. MAGNESIUM OXIDE [Concomitant]
     Active Substance: MAGNESIUM OXIDE
     Indication: Constipation
     Dosage: ONGOING
     Route: 048
     Dates: start: 20211127
  42. MAGNESIUM OXIDE [Concomitant]
     Active Substance: MAGNESIUM OXIDE
  43. OXYCODONE HYDROCHLORIDE [Concomitant]
     Active Substance: OXYCODONE HYDROCHLORIDE
     Indication: Product used for unknown indication
     Dosage: ONGOING
     Route: 048
     Dates: start: 20211217
  44. CARBAZOCHROME SODIUM SULFONATE [Concomitant]
     Active Substance: CARBAZOCHROME SODIUM SULFONATE
     Indication: Epistaxis
     Dosage: ONGOING
     Route: 048
     Dates: start: 20220107
  45. MAGUNESIUM SULFATE HYDRATE [Concomitant]
     Indication: Prophylaxis
     Dosage: 1 DF= 8 UNIT NOS, ONGOING
     Route: 042
     Dates: start: 20211126
  46. CHLORPHENAMINE MALEATE;DIHYDROCODEINE PHOSPHATE;METHYLEPHEDRINE HYDROC [Concomitant]
     Indication: Product used for unknown indication
     Dosage: 1 DF=9 UNIT NOS-ONGOING
     Route: 048
     Dates: start: 20211101
  47. BUTYRIC ACID [Concomitant]
     Active Substance: BUTYRIC ACID
     Indication: Diarrhoea
     Dosage: 1 DF= 1UNIT NOS-ONGOING
     Route: 048
     Dates: start: 20211203
  48. FLUTICASONE PROPIONATE\FORMOTEROL FUMARATE [Concomitant]
     Active Substance: FLUTICASONE PROPIONATE\FORMOTEROL FUMARATE
     Indication: Product used for unknown indication
     Dosage: ONGOING
     Route: 055
  49. SENNOSIDE A-B CALCIUM [Concomitant]
     Indication: Constipation
     Dosage: ONGOING
     Route: 048
     Dates: start: 20211127
  50. MIYA-BM [Concomitant]
     Active Substance: CLOSTRIDIUM BUTYRICUM SPORES STRAIN M-55
     Indication: Diarrhoea
     Dosage: 1DF= 3 UNITS NOT PROVIDED-ONGOING
     Route: 048
     Dates: start: 20211203
  51. VITAMINS [Concomitant]
     Active Substance: VITAMINS
     Indication: Prophylaxis
     Dosage: ONGOING
     Route: 048
     Dates: start: 20211117
  52. BIFIDOBACTERIUM LONGUM [Concomitant]
     Active Substance: BIFIDOBACTERIUM LONGUM
     Indication: Colitis
     Dosage: 1 DF= 1 UNIT NOT PROVIDED-ONGOING
     Route: 048
     Dates: start: 20220222
  53. SULFAMETHOXAZOLE\TRIMETHOPRIM [Concomitant]
     Active Substance: SULFAMETHOXAZOLE\TRIMETHOPRIM
     Indication: Colitis
     Dosage: 1 DF=1 UNIT NOT PROVIDED-ONGOING
     Route: 048
     Dates: start: 20220303
  54. BFULUID INJECTION [Concomitant]
     Indication: Product used for unknown indication
     Dosage: 1 DF= 500 UNIT NOS
     Route: 042
     Dates: start: 20220308, end: 20220314
  55. OMEPLAZOLE SODIUM [Concomitant]
     Indication: Prophylaxis
     Dosage: ONGOING
     Route: 042
     Dates: start: 20220327
  56. MIDAZOLAM [Concomitant]
     Active Substance: MIDAZOLAM
     Indication: Prophylaxis
     Route: 042
     Dates: start: 20220327, end: 20220406
  57. HEPARINOID [Concomitant]
     Indication: Product used for unknown indication
     Dosage: ONGOING
     Route: 062
     Dates: start: 20220315
  58. AMPHOTERICIN B [Concomitant]
     Active Substance: AMPHOTERICIN B
     Indication: Product used for unknown indication
     Dosage: ONGOING
     Route: 048
     Dates: start: 20220316

REACTIONS (1)
  - Encephalopathy [Not Recovered/Not Resolved]

NARRATIVE: CASE EVENT DATE: 20220327
